FAERS Safety Report 7395957-3 (Version None)
Quarter: 2011Q2

REPORT INFORMATION
  Report Type: 
  Country: None (occurrence: None)
  Receive Date: 20110406
  Receipt Date: 20110328
  Transmission Date: 20111010
  Serious: No
  Sender: FDA-Public Use
  Company Number: US-BIOGENIDEC-2011BI011408

PATIENT
  Age: 46 Year
  Sex: Female

DRUGS (1)
  1. AVONEX [Suspect]
     Indication: MULTIPLE SCLEROSIS
     Route: 030
     Dates: start: 20101217

REACTIONS (12)
  - TREMOR [None]
  - MUSCULOSKELETAL STIFFNESS [None]
  - RED BLOOD CELL COUNT DECREASED [None]
  - CHILLS [None]
  - GAIT DISTURBANCE [None]
  - SERUM FERRITIN DECREASED [None]
  - RESTLESSNESS [None]
  - HAEMATOCRIT DECREASED [None]
  - PAIN IN EXTREMITY [None]
  - BLOOD IRON DECREASED [None]
  - HAEMOGLOBIN DECREASED [None]
  - FEELING HOT [None]
